FAERS Safety Report 9739526 (Version 1)
Quarter: 2013Q4

REPORT INFORMATION
  Report Type: Spontaneous
  Country: US (occurrence: US)
  Receive Date: 20131209
  Receipt Date: 20131209
  Transmission Date: 20140711
  Serious: Yes (Hospitalization, Other)
  Sender: FDA-Public Use
  Company Number: US-ACCORD-020665

PATIENT
  Age: 80 Year
  Sex: Male

DRUGS (16)
  1. TRIAMTERENE/HCTZ [Concomitant]
     Dosage: 37.5/25 MG PO QOD
     Route: 048
  2. MONTELUKAST [Concomitant]
     Route: 048
  3. FLUTICASONE PROPIONATE [Concomitant]
     Dosage: ONE SPRAY IN?BOTH NOSTRILS DAILY
  4. GLYBURIDE [Concomitant]
     Dosage: 2.5 MG PO BID
     Route: 048
  5. FEXOFENADINE [Concomitant]
     Dosage: QPM
     Route: 048
  6. MECLIZINE [Concomitant]
     Dosage: PRN
     Route: 048
  7. IRBESARTAN [Concomitant]
     Route: 048
  8. HYDROCODONE W/APAP [Concomitant]
     Dosage: 5/500 MG 2 TABS PO DAILY PRN.
     Route: 048
  9. ALLOPURINOL [Suspect]
     Indication: PRODUCT USED FOR UNKNOWN INDICATION
     Route: 048
  10. ALBUTEROL [Concomitant]
     Dosage: 90 MCG 2 PUFFS Q6H PRN;
  11. CYCLOBENZAPRINE [Concomitant]
     Dosage: 10 MG PO QHS?PRN;
     Route: 048
  12. SIMVASTATIN [Concomitant]
     Route: 048
  13. TERAZOSIN [Concomitant]
     Dosage: 2 MG PO QHS;
     Route: 048
  14. AZELASTINE [Concomitant]
     Dosage: 1 SPRAY?IN BOTH NOSTRILS PRN
  15. FLUTICASONE [Concomitant]
     Dosage: 110 MCG
  16. AMLODIPINE [Concomitant]
     Route: 048

REACTIONS (8)
  - Vasculitis [Recovering/Resolving]
  - Hepatitis [Unknown]
  - Renal failure acute [Recovering/Resolving]
  - Leukocytosis [Unknown]
  - Cerebrovascular accident [Unknown]
  - Respiratory arrest [Unknown]
  - Shock [Unknown]
  - Drug reaction with eosinophilia and systemic symptoms [Unknown]
